FAERS Safety Report 7263220-7 (Version None)
Quarter: 2011Q1

REPORT INFORMATION
  Report Type: 
  Country: None (occurrence: None)
  Receive Date: 20110130
  Receipt Date: 20101014
  Transmission Date: 20110831
  Serious: No
  Sender: FDA-Public Use
  Company Number: US-ABBOTT-10P-163-0678357-00

PATIENT
  Age: 21 Year
  Sex: Female

DRUGS (2)
  1. PREDNISONE [Concomitant]
     Indication: PRODUCT USED FOR UNKNOWN INDICATION
  2. HUMIRA [Suspect]
     Indication: ANKYLOSING SPONDYLITIS
     Dates: start: 20101006

REACTIONS (8)
  - FATIGUE [None]
  - ARTHRALGIA [None]
  - HEADACHE [None]
  - PYREXIA [None]
  - CHILLS [None]
  - HYPERHIDROSIS [None]
  - THIRST [None]
  - BACK PAIN [None]
